FAERS Safety Report 8515470-7 (Version None)
Quarter: 2012Q3

REPORT INFORMATION
  Report Type: 
  Country: None (occurrence: None)
  Receive Date: 20120717
  Receipt Date: 20120707
  Transmission Date: 20120928
  Serious: Yes (Other)
  Sender: FDA-Public Use
  Company Number: ES-ELI_LILLY_AND_COMPANY-ES201207003115

PATIENT
  Sex: Male

DRUGS (11)
  1. DURAGESIC-100 [Concomitant]
     Indication: PAIN
     Dosage: 50 UG, OTHER
     Route: 062
     Dates: start: 20120601
  2. OMEPRAZOLE [Concomitant]
     Dosage: 20 MG, QD
     Dates: start: 20120601
  3. NAPROXEN [Concomitant]
     Indication: PAIN
     Dosage: 500 MG, EVERY 8 HRS
     Dates: start: 20120601
  4. BOREA [Concomitant]
     Dosage: 160 MG, QD
     Dates: start: 20120601
  5. LEVOTHYROXINE SODIUM [Concomitant]
     Indication: HYPOTHYROIDISM
     Dosage: 100 UG, QD
     Dates: start: 20110701
  6. PRAVASTATIN [Concomitant]
     Indication: DYSLIPIDAEMIA
     Dosage: 40 MG, QD
     Route: 048
  7. ALIMTA [Suspect]
     Indication: LUNG NEOPLASM MALIGNANT
     Dosage: UNK, OTHER
     Route: 042
     Dates: start: 20120630
  8. ASPIRIN [Concomitant]
     Indication: ANTIPLATELET THERAPY
     Dosage: 100 MG, UNK
     Dates: start: 20110701
  9. OMNIC OCAS [Concomitant]
     Indication: BENIGN PROSTATIC HYPERPLASIA
     Dosage: 0.4 MG, QD
  10. NOLOTIL [Concomitant]
     Dosage: 2 G, OTHER
     Route: 048
     Dates: start: 20120601
  11. DEXAMETHASONE [Concomitant]
     Dosage: 4 MG, QD
     Route: 048
     Dates: start: 20120601

REACTIONS (2)
  - SOMNOLENCE [None]
  - DELIRIUM [None]
